FAERS Safety Report 6051821-3 (Version None)
Quarter: 2009Q1

REPORT INFORMATION
  Report Type: 
  Country: None (occurrence: None)
  Receive Date: 20090126
  Receipt Date: 20090121
  Transmission Date: 20090719
  Serious: Yes (Death, Other)
  Sender: FDA-Public Use
  Company Number: PHEH2008US10177

PATIENT
  Sex: Male
  Weight: 63.039 kg

DRUGS (5)
  1. GLEEVEC [Suspect]
     Indication: CHRONIC MYELOID LEUKAEMIA
     Dosage: 200 MG, QD
     Route: 048
     Dates: start: 20010801, end: 20081109
  2. AMARYL [Concomitant]
     Indication: DIABETES MELLITUS
     Dosage: UNK
     Route: 048
  3. SYNTHROID [Concomitant]
     Indication: HYPOTHYROIDISM
     Dosage: UNK
     Route: 048
  4. ALLOPURINOL [Concomitant]
     Indication: GOUT
     Dosage: UNK
     Route: 048
  5. ASPIRIN [Concomitant]
     Indication: CORONARY ARTERY DISEASE
     Dosage: UNK
     Route: 048

REACTIONS (5)
  - ASTHENIA [None]
  - DIABETES MELLITUS [None]
  - FALL [None]
  - MALIGNANT NEOPLASM PROGRESSION [None]
  - PNEUMONIA ASPIRATION [None]
